FAERS Safety Report 13747012 (Version 1)
Quarter: 2017Q3

REPORT INFORMATION
  Report Type: Spontaneous
  Country: GR (occurrence: GR)
  Receive Date: 20170712
  Receipt Date: 20170712
  Transmission Date: 20171127
  Serious: Yes (Other)
  Sender: FDA-Public Use
  Company Number: GR-JNJFOC-20170708011

PATIENT
  Age: 32 Year
  Sex: Female

DRUGS (1)
  1. STELARA [Suspect]
     Active Substance: USTEKINUMAB
     Indication: PSORIASIS
     Dosage: START DATE ABOUT 4 YEARS AGO (2013),
     Route: 058
     Dates: start: 2013

REACTIONS (1)
  - HIV test positive [Unknown]
